FAERS Safety Report 7043788-6 (Version None)
Quarter: 2010Q4

REPORT INFORMATION
  Report Type: 
  Country: None (occurrence: None)
  Receive Date: 20101008
  Receipt Date: 20101008
  Transmission Date: 20110411
  Serious: Yes (Disabling)
  Sender: FDA-Public Use
  Company Number: None

PATIENT
  Sex: Female
  Weight: 72.5755 kg

DRUGS (2)
  1. BONIVA [Suspect]
     Indication: OSTEOPENIA
     Dosage: 1 X PER MO
     Dates: start: 20070501, end: 20100601
  2. BONIVA [Suspect]
     Indication: OSTEOPOROSIS
     Dosage: 1 X PER MO
     Dates: start: 20070501, end: 20100601

REACTIONS (6)
  - ANKLE FRACTURE [None]
  - ARTHRALGIA [None]
  - BONE PAIN [None]
  - IMPAIRED WORK ABILITY [None]
  - STRESS FRACTURE [None]
  - WRIST FRACTURE [None]
